FAERS Safety Report 7176145-2 (Version None)
Quarter: 2010Q4

REPORT INFORMATION
  Report Type: 
  Country: None (occurrence: None)
  Receive Date: 20101220
  Receipt Date: 20101209
  Transmission Date: 20110411
  Serious: No
  Sender: FDA-Public Use
  Company Number: US-BIOGENIDEC-2010BI043445

PATIENT
  Age: 45 Year
  Sex: Female

DRUGS (3)
  1. TYSABRI [Suspect]
     Indication: MULTIPLE SCLEROSIS
     Route: 042
     Dates: start: 20100810
  2. NUVIGIL [Concomitant]
     Indication: FATIGUE
     Dates: start: 20090101
  3. GABAPENTIN [Concomitant]
     Indication: BURNING SENSATION
     Dates: start: 20090101

REACTIONS (6)
  - ANGER [None]
  - FALL [None]
  - HYPOAESTHESIA [None]
  - JOINT SPRAIN [None]
  - LOWER LIMB FRACTURE [None]
  - STRESS [None]
